FAERS Safety Report 8480635-X (Version None)
Quarter: 2012Q3

REPORT INFORMATION
  Report Type: 
  Country: None (occurrence: None)
  Receive Date: 20120702
  Receipt Date: 20070820
  Transmission Date: 20120928
  Serious: No
  Sender: FDA-Public Use
  Company Number: 2007BI017838

PATIENT
  Age: 39 Year
  Sex: Female

DRUGS (1)
  1. TYSABRI [Suspect]
     Indication: MULTIPLE SCLEROSIS
     Route: 042
     Dates: start: 20070713, end: 20110613

REACTIONS (8)
  - HYPERHIDROSIS [None]
  - HEADACHE [None]
  - PNEUMONIA [None]
  - NAUSEA [None]
  - FATIGUE [None]
  - DIZZINESS [None]
  - VERTIGO [None]
  - FLUSHING [None]
